FAERS Safety Report 6650311-4 (Version None)
Quarter: 2010Q1

REPORT INFORMATION
  Report Type: 
  Country: None (occurrence: None)
  Receive Date: 20100325
  Receipt Date: 20100316
  Transmission Date: 20100710
  Serious: Yes (Hospitalization)
  Sender: FDA-Public Use
  Company Number: PHHY2010JP07703

PATIENT
  Age: 7 Year
  Sex: Male

DRUGS (1)
  1. ZADITEN [Suspect]
     Indication: DERMATITIS ATOPIC
     Dosage: DAILY
     Route: 048

REACTIONS (6)
  - ABNORMAL BEHAVIOUR [None]
  - ATONIC SEIZURES [None]
  - CONVULSION [None]
  - GAZE PALSY [None]
  - RESTLESSNESS [None]
  - SYNCOPE [None]
